FAERS Safety Report 21432613 (Version 1)
Quarter: 2022Q4

REPORT INFORMATION
  Report Type: Report from Study
  Country: ES (occurrence: ES)
  Receive Date: 20221010
  Receipt Date: 20221010
  Transmission Date: 20230113
  Serious: Yes (Hospitalization)
  Sender: FDA-Public Use
  Company Number: ES-ABBVIE-22K-144-4529497-00

PATIENT
  Sex: Male

DRUGS (2)
  1. CARBIDOPA\LEVODOPA [Suspect]
     Active Substance: CARBIDOPA\LEVODOPA
     Indication: Parkinson^s disease
     Route: 050
     Dates: start: 20211028
  2. CARBIDOPA\LEVODOPA [Suspect]
     Active Substance: CARBIDOPA\LEVODOPA

REACTIONS (8)
  - Abdominal pain [Unknown]
  - Vitamin B6 decreased [Not Recovered/Not Resolved]
  - Abdominal pain upper [Recovered/Resolved]
  - Infection [Unknown]
  - Discomfort [Unknown]
  - Abdominal discomfort [Unknown]
  - Pyrexia [Unknown]
  - Duodenal ulcer [Not Recovered/Not Resolved]

NARRATIVE: CASE EVENT DATE: 20220101
